FAERS Safety Report 9308780 (Version 1)
Quarter: 2013Q2

REPORT INFORMATION
  Report Type: Spontaneous
  Country: US (occurrence: US)
  Receive Date: 20130524
  Receipt Date: 20130524
  Transmission Date: 20140414
  Serious: No
  Sender: FDA-Public Use
  Company Number: US-NOVEN-13US006307

PATIENT
  Age: 41 Year
  Sex: Female
  Weight: 54.42 kg

DRUGS (1)
  1. MINIVELLE [Suspect]
     Indication: PRODUCT USED FOR UNKNOWN INDICATION
     Dosage: 0.075 MG, 2/WK
     Route: 062
     Dates: start: 20130130, end: 20130205

REACTIONS (4)
  - Application site erosion [Recovered/Resolved]
  - Application site haemorrhage [Recovered/Resolved]
  - Application site pruritus [Recovered/Resolved]
  - Product quality issue [Unknown]
